FAERS Safety Report 21994908 (Version 5)
Quarter: 2023Q2

REPORT INFORMATION
  Report Type: Report from Study
  Country: US (occurrence: US)
  Receive Date: 20230215
  Receipt Date: 20230504
  Transmission Date: 20230721
  Serious: Yes (Hospitalization, Other)
  Sender: FDA-Public Use
  Company Number: US-BRISTOL-MYERS SQUIBB COMPANY-2023-020955

PATIENT
  Age: 46 Year
  Sex: Female
  Weight: 71.21 kg

DRUGS (5)
  1. ELIQUIS [Suspect]
     Active Substance: APIXABAN
     Indication: Deep vein thrombosis
     Dosage: TWO TIMES A DAY
     Route: 048
     Dates: start: 20221221
  2. ELIQUIS [Suspect]
     Active Substance: APIXABAN
     Indication: Pulmonary embolism
     Route: 048
     Dates: start: 20221231
  3. WOMENS MULTI [Concomitant]
     Indication: Product used for unknown indication
     Dosage: WOMENS MULTIVITAMIN GUMMIES
  4. VITAMIN B12 [Concomitant]
     Active Substance: CYANOCOBALAMIN
     Indication: Product used for unknown indication
  5. IRON [Concomitant]
     Active Substance: IRON
     Indication: Product used for unknown indication
     Dosage: EVERY OTHER DAY

REACTIONS (5)
  - Loss of consciousness [Unknown]
  - Pulmonary embolism [Unknown]
  - Vaginal haemorrhage [Recovered/Resolved]
  - Haematochezia [Unknown]
  - Intentional product use issue [Unknown]

NARRATIVE: CASE EVENT DATE: 20221201
